FAERS Safety Report 8337646-4 (Version None)
Quarter: 2012Q2

REPORT INFORMATION
  Report Type: 
  Country: None (occurrence: None)
  Receive Date: 20120504
  Receipt Date: 20120504
  Transmission Date: 20120825
  Serious: No
  Sender: FDA-Public Use
  Company Number: None

PATIENT
  Age: 54 Year
  Sex: Male
  Weight: 70.306 kg

DRUGS (1)
  1. ATORVASTATIN CALCIUM [Suspect]
     Indication: BLOOD CHOLESTEROL INCREASED
     Dosage: |STRENGTH: 40 MG||FREQ: ONCE||ROUTE: ORAL|
     Route: 048
     Dates: start: 20120326, end: 20120425

REACTIONS (4)
  - MYALGIA [None]
  - FATIGUE [None]
  - PRODUCT SUBSTITUTION ISSUE [None]
  - MUSCULAR WEAKNESS [None]
